FAERS Safety Report 6772911-3 (Version None)
Quarter: 2010Q2

REPORT INFORMATION
  Report Type: 
  Country: None (occurrence: None)
  Receive Date: 20100616
  Receipt Date: 20100611
  Transmission Date: 20101027
  Serious: Yes (Death)
  Sender: FDA-Public Use
  Company Number: PHHY2010DE26548

PATIENT
  Sex: Female
  Weight: 67 kg

DRUGS (6)
  1. SANDIMMUNE [Suspect]
     Indication: ECZEMA
     Dosage: 150 MG/D
     Route: 048
     Dates: start: 20021205, end: 20040806
  2. SANDIMMUNE [Suspect]
     Dosage: 150 MG/D
     Route: 048
     Dates: start: 20040910, end: 20090226
  3. CYCLOSPORINE [Suspect]
     Indication: ECZEMA
     Dosage: UNK
     Route: 048
     Dates: start: 20020101
  4. CYCLOSPORINE [Suspect]
     Dosage: 200 MG/D
     Route: 048
     Dates: start: 20040910, end: 20090226
  5. ALITRETINOIN [Concomitant]
     Indication: ECZEMA
     Dosage: UNK
     Dates: start: 20090201
  6. ALITRETINOIN [Concomitant]
     Dosage: 30 MG/ D
     Route: 048
     Dates: start: 20090331, end: 20091216

REACTIONS (5)
  - BLOOD CREATININE INCREASED [None]
  - BLOOD UREA INCREASED [None]
  - BRONCHIAL CARCINOMA [None]
  - CARDIAC FAILURE [None]
  - CARDIOGENIC SHOCK [None]
